FAERS Safety Report 12825409 (Version 2)
Quarter: 2020Q4

REPORT INFORMATION
  Report Type: Spontaneous
  Country: EG (occurrence: EG)
  Receive Date: 20161007
  Receipt Date: 20201120
  Transmission Date: 20210113
  Serious: Yes (Death, Hospitalization, Other)
  Sender: FDA-Public Use
  Company Number: EG-SA-2016SA184618

PATIENT

DRUGS (1)
  1. CEREZYME [Suspect]
     Active Substance: IMIGLUCERASE
     Indication: PRODUCT USED FOR UNKNOWN INDICATION
     Dosage: UNK UNK,UNK
     Route: 042

REACTIONS (4)
  - Disease progression [Fatal]
  - Seizure [Fatal]
  - Circulatory collapse [Fatal]
  - Status epilepticus [Fatal]

NARRATIVE: CASE EVENT DATE: 2016
